FAERS Safety Report 19063855 (Version 3)
Quarter: 2021Q2

REPORT INFORMATION
  Report Type: Report from Study
  Country: US (occurrence: US)
  Receive Date: 20210326
  Receipt Date: 20210528
  Transmission Date: 20210717
  Serious: Yes (Other)
  Sender: FDA-Public Use
  Company Number: US-EMD SERONO-9223197

PATIENT
  Age: 41 Year
  Sex: Female
  Weight: 109 kg

DRUGS (1)
  1. MAVENCLAD [Suspect]
     Active Substance: CLADRIBINE
     Indication: MULTIPLE SCLEROSIS
     Dosage: YEAR ONE MONTH ONE THERAPY: TWO TABLETS ON DAYS 1 TO 5
     Route: 048
     Dates: start: 20210220

REACTIONS (7)
  - Eyelid boil [Recovering/Resolving]
  - Ocular hyperaemia [Not Recovered/Not Resolved]
  - Eye swelling [Recovering/Resolving]
  - Eye discharge [Not Recovered/Not Resolved]
  - Ophthalmic herpes simplex [Unknown]
  - Eye pain [Not Recovered/Not Resolved]
  - Eye pruritus [Unknown]

NARRATIVE: CASE EVENT DATE: 20210227
